FAERS Safety Report 7012687-8 (Version None)
Quarter: 2010Q3

REPORT INFORMATION
  Report Type: 
  Country: None (occurrence: None)
  Receive Date: 20100924
  Receipt Date: 20100914
  Transmission Date: 20110219
  Serious: Yes (Other)
  Sender: FDA-Public Use
  Company Number: US-ROCHE-728362

PATIENT
  Sex: Female

DRUGS (7)
  1. HERCEPTIN [Suspect]
     Route: 042
     Dates: start: 20000101
  2. XELODA [Suspect]
     Route: 048
  3. TYKERB [Concomitant]
  4. GEMZAR [Concomitant]
  5. ATIVAN [Concomitant]
  6. LASIX [Concomitant]
  7. METOPROLOL TARTRATE [Concomitant]

REACTIONS (3)
  - DRUG EFFECT DECREASED [None]
  - DRUG INEFFECTIVE [None]
  - NEOPLASM MALIGNANT [None]
